FAERS Safety Report 9632747 (Version 4)
Quarter: 2013Q4

REPORT INFORMATION
  Report Type: Spontaneous
  Country: US (occurrence: US)
  Receive Date: 20131018
  Receipt Date: 20131231
  Transmission Date: 20140711
  Serious: Yes (Hospitalization, Other)
  Sender: FDA-Public Use
  Company Number: US-ABBVIE-13P-163-1157159-00

PATIENT
  Age: 67 Year
  Sex: Female
  Weight: 68.1 kg

DRUGS (12)
  1. HUMIRA [Suspect]
     Indication: COLITIS ULCERATIVE
     Route: 058
     Dates: start: 2009, end: 201307
  2. HUMIRA [Suspect]
     Route: 058
     Dates: start: 201307
  3. ASPIRIN [Concomitant]
     Indication: PRODUCT USED FOR UNKNOWN INDICATION
  4. AZOTHIOPRINE [Concomitant]
     Indication: COLITIS ULCERATIVE
  5. BALSALAZAIDE [Concomitant]
     Indication: COLITIS ULCERATIVE
  6. CALCIUM [Concomitant]
     Indication: PRODUCT USED FOR UNKNOWN INDICATION
  7. CREON [Concomitant]
     Indication: COLITIS ULCERATIVE
     Dosage: 3 WITH MEALS AND 2 WITH SNACKS
  8. GLIPIZIDE [Concomitant]
     Indication: DIABETES MELLITUS
  9. HYOSCYAMINE [Concomitant]
     Indication: MUSCLE SPASMS
  10. JANUVIA [Concomitant]
     Indication: DIABETES MELLITUS
  11. LORATADINE [Concomitant]
     Indication: PRODUCT USED FOR UNKNOWN INDICATION
  12. MELOXICAM [Concomitant]
     Indication: PRODUCT USED FOR UNKNOWN INDICATION

REACTIONS (13)
  - Vision blurred [Recovered/Resolved]
  - Cerebrovascular accident [Recovered/Resolved]
  - Colitis ulcerative [Recovering/Resolving]
  - Feeling abnormal [Recovered/Resolved]
  - Heart rate irregular [Recovered/Resolved]
  - Nasal congestion [Unknown]
  - Vaginal disorder [Not Recovered/Not Resolved]
  - Dermatitis [Recovered/Resolved]
  - Confusional state [Recovered/Resolved]
  - Hormone level abnormal [Not Recovered/Not Resolved]
  - Blood pressure increased [Recovered/Resolved]
  - Tachycardia [Recovered/Resolved]
  - Hypoglycaemia [Recovered/Resolved]
